FAERS Safety Report 24466716 (Version 1)
Quarter: 2024Q4

REPORT INFORMATION
  Report Type: Report from Study
  Country: US (occurrence: US)
  Receive Date: 20241018
  Receipt Date: 20241018
  Transmission Date: 20250115
  Serious: No
  Sender: ROCHE
  Company Number: US-ROCHE-3548726

PATIENT
  Age: 47 Year
  Sex: Female

DRUGS (16)
  1. XOLAIR [Suspect]
     Active Substance: OMALIZUMAB
     Indication: Idiopathic urticaria
     Dosage: 150 MG/ML, LAST INJECTION DATE: 27/MAY/2022
     Route: 058
  2. XOLAIR [Suspect]
     Active Substance: OMALIZUMAB
  3. ALLEGRA [Concomitant]
     Active Substance: FEXOFENADINE HYDROCHLORIDE
  4. FAMOTIDINE [Concomitant]
     Active Substance: FAMOTIDINE
  5. HYDROXYZINE [Concomitant]
     Active Substance: HYDROXYZINE HYDROCHLORIDE
  6. AZELASTINE [Concomitant]
     Active Substance: AZELASTINE
  7. CRESTOR [Concomitant]
     Active Substance: ROSUVASTATIN CALCIUM
  8. EPINEPHRINE [Concomitant]
     Active Substance: EPINEPHRINE
  9. FLUOXETINE [Concomitant]
     Active Substance: FLUOXETINE HYDROCHLORIDE
  10. TIZANIDINE [Concomitant]
     Active Substance: TIZANIDINE
  11. ACETAMINOPHEN [Concomitant]
     Active Substance: ACETAMINOPHEN
  12. AUGMENTIN [Concomitant]
     Active Substance: AMOXICILLIN\CLAVULANATE POTASSIUM
  13. FLUCONAZOLE [Concomitant]
     Active Substance: FLUCONAZOLE
  14. FOLIC ACID [Concomitant]
     Active Substance: FOLIC ACID
  15. MELOXICAM [Concomitant]
     Active Substance: MELOXICAM
  16. METHOTREXATE [Concomitant]
     Active Substance: METHOTREXATE

REACTIONS (5)
  - Nausea [Unknown]
  - Arrhythmia [Unknown]
  - Asthma [Unknown]
  - Pruritus [Unknown]
  - Vomiting [Unknown]
